FAERS Safety Report 23831616 (Version 1)
Quarter: 2024Q2

REPORT INFORMATION
  Report Type: Spontaneous
  Country: FR (occurrence: None)
  Receive Date: 20240508
  Receipt Date: 20240508
  Transmission Date: 20240716
  Serious: Yes (Hospitalization)
  Sender: FDA-Public Use
  Company Number: 2024A102507

PATIENT
  Age: 65 Year
  Sex: Male
  Weight: 108 kg

DRUGS (8)
  1. TICAGRELOR [Suspect]
     Active Substance: TICAGRELOR
     Indication: Vascular device user
     Dosage: 90X2/J
     Route: 048
     Dates: start: 20240106, end: 20240217
  2. ASPIRIN [Suspect]
     Active Substance: ASPIRIN
     Indication: Vascular device user
     Route: 048
     Dates: start: 20240106
  3. OXAZEPAM [Concomitant]
     Active Substance: OXAZEPAM
  4. METOPROLOL FUMARATE [Concomitant]
     Active Substance: METOPROLOL FUMARATE
  5. PERINDOPRIL [Concomitant]
     Active Substance: PERINDOPRIL
  6. ROSUVASTATIN [Concomitant]
     Active Substance: ROSUVASTATIN
  7. PANTOPRAZOLE [Concomitant]
     Active Substance: PANTOPRAZOLE
  8. NICOTINE [Concomitant]
     Active Substance: NICOTINE

REACTIONS (2)
  - Gastric ulcer [Not Recovered/Not Resolved]
  - Blood loss anaemia [Recovering/Resolving]

NARRATIVE: CASE EVENT DATE: 20240201
